FAERS Safety Report 23538101 (Version 2)
Quarter: 2024Q1

REPORT INFORMATION
  Report Type: Spontaneous
  Country: US (occurrence: None)
  Receive Date: 20240219
  Receipt Date: 20240323
  Transmission Date: 20240410
  Serious: No
  Sender: FDA-Public Use
  Company Number: 2024A036461

PATIENT
  Sex: Female

DRUGS (1)
  1. SAPHNELO [Suspect]
     Active Substance: ANIFROLUMAB\ANIFROLUMAB-FNIA
     Dates: start: 202309

REACTIONS (6)
  - Illness [Unknown]
  - Fatigue [Unknown]
  - Mood swings [Unknown]
  - Systemic lupus erythematosus [Unknown]
  - Somnolence [Unknown]
  - Inappropriate schedule of product administration [Unknown]
